FAERS Safety Report 15981396 (Version 1)
Quarter: 2019Q1

REPORT INFORMATION
  Report Type: Spontaneous
  Country: SA (occurrence: SA)
  Receive Date: 20190219
  Receipt Date: 20190219
  Transmission Date: 20190418
  Serious: Yes (Life-Threatening, Other)
  Sender: FDA-Public Use
  Company Number: None

PATIENT

DRUGS (1)
  1. IMIPENEM [Suspect]
     Active Substance: IMIPENEM
     Route: 041

REACTIONS (3)
  - Dyspnoea [None]
  - Generalised tonic-clonic seizure [None]
  - Cyanosis [None]
